FAERS Safety Report 19146206 (Version 1)
Quarter: 2021Q2

REPORT INFORMATION
  Report Type: Spontaneous
  Country: US (occurrence: US)
  Receive Date: 20210416
  Receipt Date: 20210416
  Transmission Date: 20210717
  Serious: Yes (Other)
  Sender: FDA-Public Use
  Company Number: US-TEVA-2021-US-1900298

PATIENT
  Age: 63 Year
  Sex: Female

DRUGS (1)
  1. ALBUTEROL SULFATE HFA TEVA [Suspect]
     Active Substance: ALBUTEROL SULFATE
     Indication: PRODUCT USED FOR UNKNOWN INDICATION
     Route: 065
     Dates: start: 202010

REACTIONS (4)
  - Diarrhoea [Unknown]
  - Arrhythmia [Unknown]
  - Product taste abnormal [Unknown]
  - Blood cholesterol abnormal [Unknown]
